FAERS Safety Report 10466719 (Version 1)
Quarter: 2014Q3

REPORT INFORMATION
  Report Type: Spontaneous
  Country: ZA (occurrence: ZA)
  Receive Date: 20140922
  Receipt Date: 20140922
  Transmission Date: 20150326
  Serious: Yes (Hospitalization)
  Sender: FDA-Public Use
  Company Number: ZA-ASTELLAS-2014EU012472

PATIENT
  Age: 76 Year
  Sex: Female

DRUGS (11)
  1. DISIPAL [Concomitant]
     Active Substance: ORPHENADRINE HYDROCHLORIDE
     Indication: PARKINSON^S DISEASE
     Dosage: UNK UNK, UNKNOWN FREQ.
     Route: 048
  2. ARCOXIA [Concomitant]
     Active Substance: ETORICOXIB
     Indication: OSTEOARTHRITIS
     Dosage: UNK UNK, UNKNOWN FREQ.
     Route: 048
  3. PREMARIN CREAM [Concomitant]
     Indication: COLPORRHAPHY
     Dosage: UNK, UNKNOWN FREQ.
     Route: 067
     Dates: start: 2013
  4. PHARMAPRESS                        /00574902/ [Concomitant]
     Indication: HYPERTENSION
     Dosage: UNK UNK, UNKNOWN FREQ.
     Route: 048
  5. VESICARE [Suspect]
     Active Substance: SOLIFENACIN SUCCINATE
     Indication: HYPERTONIC BLADDER
     Dosage: 5 MG, DAILY
     Route: 048
     Dates: start: 201304
  6. EPLEPTIN [Concomitant]
     Active Substance: GABAPENTIN
     Indication: CONVULSION
     Dosage: UNK UNK, UNKNOWN FREQ.
     Route: 048
  7. ARCOXIA [Concomitant]
     Active Substance: ETORICOXIB
     Indication: RHEUMATOID ARTHRITIS
  8. ASPEN RISPERIDONE [Concomitant]
     Indication: SCHIZOPHRENIA
     Dosage: UNK UNK, UNKNOWN FREQ.
     Route: 048
  9. HEXMEZOL [Concomitant]
     Indication: ULCER
     Dosage: UNK, AS NEEDED
     Route: 048
     Dates: start: 201405
  10. SANDOZ MIRTAZAPINE [Concomitant]
     Indication: DEPRESSION
     Dosage: UNK, UNKNOWN FREQ.
     Route: 048
     Dates: start: 201305
  11. TRAMCET [Concomitant]
     Active Substance: ACETAMINOPHEN\TRAMADOL
     Indication: PAIN
     Dosage: UNK UNK, UNKNOWN FREQ.
     Route: 048

REACTIONS (2)
  - Cystitis [Unknown]
  - Vaginal infection [Unknown]

NARRATIVE: CASE EVENT DATE: 201409
